FAERS Safety Report 23059754 (Version 1)
Quarter: 2023Q4

REPORT INFORMATION
  Report Type: Spontaneous
  Country: ES (occurrence: ES)
  Receive Date: 20231012
  Receipt Date: 20231012
  Transmission Date: 20240110
  Serious: Yes (Other)
  Sender: FDA-Public Use
  Company Number: None

PATIENT
  Sex: Male

DRUGS (1)
  1. VANCOMYCIN HYDROCHLORIDE [Suspect]
     Active Substance: VANCOMYCIN HYDROCHLORIDE
     Dosage: 0.8 MG/KG/H AVERAGE OVER THE PREVIOUS 12 HOURS
     Dates: start: 20230802

REACTIONS (1)
  - Oliguria [Unknown]

NARRATIVE: CASE EVENT DATE: 20230802
